FAERS Safety Report 10254561 (Version 2)
Quarter: 2014Q2

REPORT INFORMATION
  Report Type: Report from Study
  Country: US (occurrence: US)
  Receive Date: 20140624
  Receipt Date: 20140624
  Transmission Date: 20141212
  Serious: Yes (Other)
  Sender: FDA-Public Use
  Company Number: US-ROCHE-1371048

PATIENT
  Age: 55 Year
  Sex: Female
  Weight: 74.46 kg

DRUGS (5)
  1. ERIVEDGE [Suspect]
     Indication: BASAL CELL CARCINOMA
     Dosage: THERAPY STOPPED ON AN UNSPECIFIED DATE
     Route: 048
     Dates: start: 201401
  2. PROCHLORPERAZINE [Concomitant]
     Indication: NAUSEA
     Route: 048
     Dates: start: 20140210
  3. ASA [Concomitant]
     Dosage: START DATE: 3-4 MONTHS AGO.
     Route: 048
  4. CHLORTHALIDONE [Concomitant]
     Indication: BLOOD PRESSURE
     Route: 048
     Dates: start: 20131216
  5. OXYCODONE [Concomitant]
     Indication: PAIN
     Route: 048
     Dates: start: 201401

REACTIONS (8)
  - Procedural pain [Not Recovered/Not Resolved]
  - Muscle spasms [Recovered/Resolved]
  - Dysgeusia [Not Recovered/Not Resolved]
  - Alopecia [Not Recovered/Not Resolved]
  - Nausea [Not Recovered/Not Resolved]
  - Pain [Recovered/Resolved]
  - Ageusia [Not Recovered/Not Resolved]
  - Blood pressure increased [Not Recovered/Not Resolved]
